FAERS Safety Report 25459672 (Version 2)
Quarter: 2025Q3

REPORT INFORMATION
  Report Type: Spontaneous
  Country: CA (occurrence: CA)
  Receive Date: 20250620
  Receipt Date: 20250717
  Transmission Date: 20251021
  Serious: Yes (Death, Life-Threatening, Hospitalization, Disabling, Other)
  Sender: SANDOZ
  Company Number: CA-SANDOZ-SDZ2025CA042317

PATIENT
  Age: 44 Year
  Sex: Female
  Weight: 78 kg

DRUGS (423)
  1. ADALIMUMAB [Suspect]
     Active Substance: ADALIMUMAB
     Route: 042
  2. ADALIMUMAB [Suspect]
     Active Substance: ADALIMUMAB
     Route: 048
  3. ADALIMUMAB [Suspect]
     Active Substance: ADALIMUMAB
     Indication: Product used for unknown indication
     Route: 058
  4. ADALIMUMAB [Suspect]
     Active Substance: ADALIMUMAB
     Indication: Rheumatoid arthritis
     Route: 058
  5. ADALIMUMAB [Suspect]
     Active Substance: ADALIMUMAB
     Indication: Psoriatic arthropathy
     Route: 065
  6. ADALIMUMAB [Suspect]
     Active Substance: ADALIMUMAB
     Route: 065
  7. APREMILAST [Suspect]
     Active Substance: APREMILAST
     Route: 065
  8. APREMILAST [Suspect]
     Active Substance: APREMILAST
     Route: 065
  9. APREMILAST [Suspect]
     Active Substance: APREMILAST
     Indication: Product used for unknown indication
     Route: 048
  10. APREMILAST [Suspect]
     Active Substance: APREMILAST
     Route: 048
  11. APREMILAST [Suspect]
     Active Substance: APREMILAST
     Route: 042
  12. APREMILAST [Suspect]
     Active Substance: APREMILAST
     Route: 042
  13. ACETAMINOPHEN [Suspect]
     Active Substance: ACETAMINOPHEN
     Indication: Rheumatoid arthritis
     Route: 065
  14. ACETAMINOPHEN [Suspect]
     Active Substance: ACETAMINOPHEN
     Indication: Pain
     Route: 065
  15. ACETAMINOPHEN [Suspect]
     Active Substance: ACETAMINOPHEN
     Indication: Pyrexia
     Route: 065
  16. ACTEMRA [Suspect]
     Active Substance: TOCILIZUMAB
     Route: 042
  17. ACTEMRA [Suspect]
     Active Substance: TOCILIZUMAB
     Route: 058
  18. ACTEMRA [Suspect]
     Active Substance: TOCILIZUMAB
     Route: 048
  19. ACTEMRA [Suspect]
     Active Substance: TOCILIZUMAB
     Route: 065
  20. ACTEMRA [Suspect]
     Active Substance: TOCILIZUMAB
     Dosage: 2912 MG, QW
     Route: 042
  21. ACTEMRA [Suspect]
     Active Substance: TOCILIZUMAB
     Dosage: 2912 MG, QW
     Route: 065
  22. ACTEMRA [Suspect]
     Active Substance: TOCILIZUMAB
     Route: 042
  23. ACTEMRA [Suspect]
     Active Substance: TOCILIZUMAB
     Route: 042
  24. ACTEMRA [Suspect]
     Active Substance: TOCILIZUMAB
     Route: 065
  25. ACTEMRA [Suspect]
     Active Substance: TOCILIZUMAB
     Dosage: 3011.2 MG, QD
     Route: 058
  26. ACTEMRA [Suspect]
     Active Substance: TOCILIZUMAB
     Route: 042
  27. ACTEMRA [Suspect]
     Active Substance: TOCILIZUMAB
     Route: 042
  28. ACTEMRA [Suspect]
     Active Substance: TOCILIZUMAB
     Route: 042
  29. ACTEMRA [Suspect]
     Active Substance: TOCILIZUMAB
     Route: 042
  30. ACTEMRA [Suspect]
     Active Substance: TOCILIZUMAB
     Route: 065
  31. ACTEMRA [Suspect]
     Active Substance: TOCILIZUMAB
     Dosage: 752.0 MG, QW
     Route: 042
  32. ACTEMRA [Suspect]
     Active Substance: TOCILIZUMAB
     Route: 065
  33. ACTEMRA [Suspect]
     Active Substance: TOCILIZUMAB
     Route: 042
  34. ACTEMRA [Suspect]
     Active Substance: TOCILIZUMAB
     Route: 042
  35. ACTEMRA [Suspect]
     Active Substance: TOCILIZUMAB
     Dosage: UNK, QW
     Route: 058
  36. ACTEMRA [Suspect]
     Active Substance: TOCILIZUMAB
     Route: 016
  37. ACTEMRA [Suspect]
     Active Substance: TOCILIZUMAB
     Route: 016
  38. ACTEMRA [Suspect]
     Active Substance: TOCILIZUMAB
     Route: 016
  39. ACTEMRA [Suspect]
     Active Substance: TOCILIZUMAB
     Indication: Rheumatoid arthritis
     Route: 042
  40. ACTEMRA [Suspect]
     Active Substance: TOCILIZUMAB
     Route: 042
  41. ACTEMRA [Suspect]
     Active Substance: TOCILIZUMAB
     Route: 042
  42. ACTEMRA [Suspect]
     Active Substance: TOCILIZUMAB
     Route: 048
  43. ACTEMRA [Suspect]
     Active Substance: TOCILIZUMAB
     Route: 058
  44. ACTEMRA [Suspect]
     Active Substance: TOCILIZUMAB
     Route: 058
  45. ACTEMRA [Suspect]
     Active Substance: TOCILIZUMAB
     Route: 061
  46. ACTEMRA [Suspect]
     Active Substance: TOCILIZUMAB
     Route: 065
  47. ACTEMRA [Suspect]
     Active Substance: TOCILIZUMAB
     Route: 065
  48. ALENDRONIC ACID [Suspect]
     Active Substance: ALENDRONIC ACID
     Route: 065
  49. ALENDRONIC ACID [Suspect]
     Active Substance: ALENDRONIC ACID
     Route: 016
  50. ALENDRONIC ACID [Suspect]
     Active Substance: ALENDRONIC ACID
     Indication: Rheumatoid arthritis
     Route: 048
  51. ALENDRONIC ACID [Suspect]
     Active Substance: ALENDRONIC ACID
     Route: 048
  52. ALENDRONIC ACID [Suspect]
     Active Substance: ALENDRONIC ACID
     Route: 048
  53. ALENDRONIC ACID [Suspect]
     Active Substance: ALENDRONIC ACID
     Indication: Product used for unknown indication
     Route: 065
  54. ALENDRONIC ACID [Suspect]
     Active Substance: ALENDRONIC ACID
     Route: 065
  55. ALENDRONIC ACID [Suspect]
     Active Substance: ALENDRONIC ACID
     Route: 065
  56. PREDNISONE [Suspect]
     Active Substance: PREDNISONE
     Indication: Pemphigus
     Route: 065
  57. PREDNISONE [Suspect]
     Active Substance: PREDNISONE
     Indication: Systemic lupus erythematosus
     Route: 065
  58. PREDNISONE [Suspect]
     Active Substance: PREDNISONE
     Indication: Psoriatic arthropathy
     Route: 048
  59. PREDNISONE [Suspect]
     Active Substance: PREDNISONE
     Route: 048
  60. PREDNISONE [Suspect]
     Active Substance: PREDNISONE
     Indication: Bursitis
     Route: 065
  61. PREDNISONE [Suspect]
     Active Substance: PREDNISONE
     Indication: Inflammation
     Route: 048
  62. PREDNISONE [Suspect]
     Active Substance: PREDNISONE
     Indication: Synovitis
     Route: 048
  63. PREDNISONE [Suspect]
     Active Substance: PREDNISONE
     Indication: Product used for unknown indication
     Route: 065
  64. PREDNISONE [Suspect]
     Active Substance: PREDNISONE
     Indication: Rheumatoid arthritis
     Route: 065
  65. APREPITANT [Suspect]
     Active Substance: APREPITANT
     Indication: Product used for unknown indication
     Route: 048
  66. APREPITANT [Suspect]
     Active Substance: APREPITANT
     Route: 065
  67. APREPITANT [Suspect]
     Active Substance: APREPITANT
     Route: 065
  68. ASACOL [Suspect]
     Active Substance: MESALAMINE
     Indication: Product used for unknown indication
     Route: 065
  69. CELECOXIB [Suspect]
     Active Substance: CELECOXIB
     Indication: Rheumatoid arthritis
     Dosage: 1.0 DF, QW, CAPSULE HARD
     Route: 048
  70. CELECOXIB [Suspect]
     Active Substance: CELECOXIB
     Route: 065
  71. CELECOXIB [Suspect]
     Active Substance: CELECOXIB
     Indication: Product used for unknown indication
     Dosage: 2 DF, QW, CAPSULE HARD
     Route: 048
  72. CELECOXIB [Suspect]
     Active Substance: CELECOXIB
     Indication: Arthritis
     Route: 065
  73. CELECOXIB [Suspect]
     Active Substance: CELECOXIB
     Route: 065
  74. CALCIUM [Suspect]
     Active Substance: CALCIUM
     Indication: Product used for unknown indication
     Route: 065
  75. CALCIUM GLUBIONATE [Suspect]
     Active Substance: CALCIUM GLUBIONATE
     Indication: Product used for unknown indication
     Route: 016
  76. CALCIUM GLUBIONATE [Suspect]
     Active Substance: CALCIUM GLUBIONATE
     Route: 065
  77. CALCIUM GLUBIONATE [Suspect]
     Active Substance: CALCIUM GLUBIONATE
     Route: 065
  78. CERTOLIZUMAB PEGOL [Suspect]
     Active Substance: CERTOLIZUMAB PEGOL
     Indication: Product used for unknown indication
     Route: 065
  79. CHLORAPREP [Suspect]
     Active Substance: CHLORHEXIDINE GLUCONATE\ISOPROPYL ALCOHOL
     Route: 048
  80. CHLORAPREP [Suspect]
     Active Substance: CHLORHEXIDINE GLUCONATE\ISOPROPYL ALCOHOL
     Route: 061
  81. CHLORAPREP [Suspect]
     Active Substance: CHLORHEXIDINE GLUCONATE\ISOPROPYL ALCOHOL
     Route: 061
  82. CHLORAPREP [Suspect]
     Active Substance: CHLORHEXIDINE GLUCONATE\ISOPROPYL ALCOHOL
     Indication: Product used for unknown indication
     Route: 065
  83. CHLORHEXIDINE GLUCONATE [Suspect]
     Active Substance: CHLORHEXIDINE GLUCONATE
     Route: 002
  84. CHLORHEXIDINE GLUCONATE [Suspect]
     Active Substance: CHLORHEXIDINE GLUCONATE
     Route: 002
  85. CHLORHEXIDINE GLUCONATE [Suspect]
     Active Substance: CHLORHEXIDINE GLUCONATE
     Indication: Product used for unknown indication
     Route: 048
  86. CHLORHEXIDINE GLUCONATE [Suspect]
     Active Substance: CHLORHEXIDINE GLUCONATE
     Route: 061
  87. CHLORHEXIDINE GLUCONATE [Suspect]
     Active Substance: CHLORHEXIDINE GLUCONATE
     Route: 061
  88. CHLORHEXIDINE GLUCONATE [Suspect]
     Active Substance: CHLORHEXIDINE GLUCONATE
     Route: 065
  89. CHLORHEXIDINE GLUCONATE [Suspect]
     Active Substance: CHLORHEXIDINE GLUCONATE
     Route: 065
  90. CHLORHEXIDINE GLUCONATE [Suspect]
     Active Substance: CHLORHEXIDINE GLUCONATE
     Route: 065
  91. CHLORHEXIDINE GLUCONATE [Suspect]
     Active Substance: CHLORHEXIDINE GLUCONATE
     Route: 065
  92. CIMZIA [Suspect]
     Active Substance: CERTOLIZUMAB PEGOL
     Indication: Psoriasis
     Route: 058
  93. CIMZIA [Suspect]
     Active Substance: CERTOLIZUMAB PEGOL
     Route: 058
  94. CIMZIA [Suspect]
     Active Substance: CERTOLIZUMAB PEGOL
     Route: 058
  95. CIMZIA [Suspect]
     Active Substance: CERTOLIZUMAB PEGOL
     Route: 058
  96. CIMZIA [Suspect]
     Active Substance: CERTOLIZUMAB PEGOL
     Indication: Rheumatoid arthritis
     Route: 065
  97. CIMZIA [Suspect]
     Active Substance: CERTOLIZUMAB PEGOL
     Indication: Product used for unknown indication
     Route: 005
  98. CIMZIA [Suspect]
     Active Substance: CERTOLIZUMAB PEGOL
     Route: 042
  99. CIMZIA [Suspect]
     Active Substance: CERTOLIZUMAB PEGOL
     Indication: Psoriatic arthropathy
     Route: 058
  100. CIMZIA [Suspect]
     Active Substance: CERTOLIZUMAB PEGOL
     Route: 058
  101. CIMZIA [Suspect]
     Active Substance: CERTOLIZUMAB PEGOL
     Route: 065
  102. CIMZIA [Suspect]
     Active Substance: CERTOLIZUMAB PEGOL
     Route: 065
  103. CIMZIA [Suspect]
     Active Substance: CERTOLIZUMAB PEGOL
     Route: 065
  104. CIMZIA [Suspect]
     Active Substance: CERTOLIZUMAB PEGOL
     Route: 065
  105. CIMZIA [Suspect]
     Active Substance: CERTOLIZUMAB PEGOL
     Route: 065
  106. CORTISONE ACETATE [Suspect]
     Active Substance: CORTISONE ACETATE
     Route: 061
  107. CORTISONE ACETATE [Suspect]
     Active Substance: CORTISONE ACETATE
     Indication: Product used for unknown indication
     Route: 048
  108. CORTISONE ACETATE [Suspect]
     Active Substance: CORTISONE ACETATE
     Indication: Rheumatoid arthritis
     Route: 061
  109. CORTISONE ACETATE [Suspect]
     Active Substance: CORTISONE ACETATE
     Route: 065
  110. CORTISONE ACETATE [Suspect]
     Active Substance: CORTISONE ACETATE
     Route: 048
  111. CORTISONE ACETATE [Suspect]
     Active Substance: CORTISONE ACETATE
     Route: 050
  112. COSENTYX [Suspect]
     Active Substance: SECUKINUMAB
     Indication: Psoriatic arthropathy
     Route: 005
  113. COSENTYX [Suspect]
     Active Substance: SECUKINUMAB
     Indication: Rheumatoid arthritis
     Route: 005
  114. COSENTYX [Suspect]
     Active Substance: SECUKINUMAB
     Route: 042
  115. COSENTYX [Suspect]
     Active Substance: SECUKINUMAB
     Route: 042
  116. DICLOFENAC [Suspect]
     Active Substance: DICLOFENAC
     Route: 065
  117. DICLOFENAC [Suspect]
     Active Substance: DICLOFENAC
     Indication: Product used for unknown indication
     Route: 047
  118. DICLOFENAC POTASSIUM [Suspect]
     Active Substance: DICLOFENAC POTASSIUM
     Indication: Product used for unknown indication
     Route: 048
  119. DICLOFENAC POTASSIUM [Suspect]
     Active Substance: DICLOFENAC POTASSIUM
     Route: 058
  120. DICLOFENAC POTASSIUM [Suspect]
     Active Substance: DICLOFENAC POTASSIUM
     Route: 058
  121. DICLOFENAC SODIUM [Suspect]
     Active Substance: DICLOFENAC SODIUM
     Route: 047
  122. DICLOFENAC SODIUM [Suspect]
     Active Substance: DICLOFENAC SODIUM
     Route: 065
  123. DICLOFENAC SODIUM [Suspect]
     Active Substance: DICLOFENAC SODIUM
     Route: 047
  124. DICLOFENAC SODIUM [Suspect]
     Active Substance: DICLOFENAC SODIUM
     Route: 047
  125. DICLOFENAC SODIUM [Suspect]
     Active Substance: DICLOFENAC SODIUM
     Route: 048
  126. DICLOFENAC SODIUM [Suspect]
     Active Substance: DICLOFENAC SODIUM
     Route: 048
  127. DICLOFENAC SODIUM [Suspect]
     Active Substance: DICLOFENAC SODIUM
     Route: 058
  128. DICLOFENAC SODIUM [Suspect]
     Active Substance: DICLOFENAC SODIUM
     Route: 058
  129. DICLOFENAC SODIUM [Suspect]
     Active Substance: DICLOFENAC SODIUM
     Indication: Product used for unknown indication
     Route: 065
  130. DICLOFENAC SODIUM [Suspect]
     Active Substance: DICLOFENAC SODIUM
     Route: 065
  131. DICLOFENAC SODIUM [Suspect]
     Active Substance: DICLOFENAC SODIUM
     Route: 065
  132. DILTIAZEM HYDROCHLORIDE [Suspect]
     Active Substance: DILTIAZEM HYDROCHLORIDE
     Route: 042
  133. DILTIAZEM HYDROCHLORIDE [Suspect]
     Active Substance: DILTIAZEM HYDROCHLORIDE
     Indication: Product used for unknown indication
     Route: 065
  134. DILTIAZEM HYDROCHLORIDE [Suspect]
     Active Substance: DILTIAZEM HYDROCHLORIDE
     Route: 065
  135. DESOXIMETASONE [Suspect]
     Active Substance: DESOXIMETASONE
     Route: 003
  136. DESOXIMETASONE [Suspect]
     Active Substance: DESOXIMETASONE
     Route: 048
  137. DESOXIMETASONE [Suspect]
     Active Substance: DESOXIMETASONE
     Route: 048
  138. DESOXIMETASONE [Suspect]
     Active Substance: DESOXIMETASONE
     Route: 061
  139. DESOXIMETASONE [Suspect]
     Active Substance: DESOXIMETASONE
     Route: 061
  140. DESOXIMETASONE [Suspect]
     Active Substance: DESOXIMETASONE
     Route: 065
  141. DESOXIMETASONE [Suspect]
     Active Substance: DESOXIMETASONE
     Route: 065
  142. DESOXIMETASONE [Suspect]
     Active Substance: DESOXIMETASONE
     Indication: Rheumatoid arthritis
     Route: 003
  143. DESOXIMETASONE [Suspect]
     Active Substance: DESOXIMETASONE
     Route: 003
  144. DESOXIMETASONE [Suspect]
     Active Substance: DESOXIMETASONE
     Route: 003
  145. DESOXIMETASONE [Suspect]
     Active Substance: DESOXIMETASONE
     Route: 003
  146. DESOXIMETASONE [Suspect]
     Active Substance: DESOXIMETASONE
     Route: 042
  147. DESOXIMETASONE [Suspect]
     Active Substance: DESOXIMETASONE
     Route: 048
  148. DESOXIMETASONE [Suspect]
     Active Substance: DESOXIMETASONE
     Route: 048
  149. DESOXIMETASONE [Suspect]
     Active Substance: DESOXIMETASONE
     Route: 048
  150. DESOXIMETASONE [Suspect]
     Active Substance: DESOXIMETASONE
     Route: 048
  151. DESOXIMETASONE [Suspect]
     Active Substance: DESOXIMETASONE
     Route: 058
  152. DESOXIMETASONE [Suspect]
     Active Substance: DESOXIMETASONE
     Route: 058
  153. DESOXIMETASONE [Suspect]
     Active Substance: DESOXIMETASONE
     Route: 058
  154. DESOXIMETASONE [Suspect]
     Active Substance: DESOXIMETASONE
     Route: 061
  155. DESOXIMETASONE [Suspect]
     Active Substance: DESOXIMETASONE
     Route: 065
  156. DESOXIMETASONE [Suspect]
     Active Substance: DESOXIMETASONE
     Route: 065
  157. DICLOFENAC DIETHYLAMINE [Suspect]
     Active Substance: DICLOFENAC DIETHYLAMINE
     Indication: Product used for unknown indication
     Route: 065
  158. DOXYCYCLINE HYCLATE [Suspect]
     Active Substance: DOXYCYCLINE HYCLATE
     Indication: Product used for unknown indication
     Route: 065
  159. ERELZI [Suspect]
     Active Substance: ETANERCEPT-SZZS
     Dosage: 50 MG, QW
     Route: 058
  160. ERELZI [Suspect]
     Active Substance: ETANERCEPT-SZZS
     Dosage: 50 MG, QW
     Route: 058
  161. ERELZI [Suspect]
     Active Substance: ETANERCEPT-SZZS
     Indication: Product used for unknown indication
     Route: 058
  162. ERELZI [Suspect]
     Active Substance: ETANERCEPT-SZZS
     Indication: Rheumatoid arthritis
     Route: 065
  163. ERELZI [Suspect]
     Active Substance: ETANERCEPT-SZZS
     Route: 065
  164. ENBREL [Suspect]
     Active Substance: ETANERCEPT
     Dosage: 20 MG, QW
     Route: 058
  165. ENBREL [Suspect]
     Active Substance: ETANERCEPT
     Dosage: 20 MG, QD
     Route: 058
  166. ENBREL [Suspect]
     Active Substance: ETANERCEPT
     Dosage: 50 MG, QW
     Route: 058
  167. ENBREL [Suspect]
     Active Substance: ETANERCEPT
     Indication: Psoriatic arthropathy
     Route: 058
  168. ENBREL [Suspect]
     Active Substance: ETANERCEPT
     Route: 058
  169. ENBREL [Suspect]
     Active Substance: ETANERCEPT
     Indication: Rheumatoid arthritis
     Route: 058
  170. ENBREL [Suspect]
     Active Substance: ETANERCEPT
     Indication: Product used for unknown indication
     Route: 065
  171. ENBREL [Suspect]
     Active Substance: ETANERCEPT
     Route: 065
  172. ENBREL [Suspect]
     Active Substance: ETANERCEPT
     Route: 065
  173. ENTYVIO [Suspect]
     Active Substance: VEDOLIZUMAB
     Indication: Product used for unknown indication
     Route: 065
  174. FLUMETHASONE PIVALATE [Suspect]
     Active Substance: FLUMETHASONE PIVALATE
     Route: 003
  175. FLUMETHASONE PIVALATE [Suspect]
     Active Substance: FLUMETHASONE PIVALATE
     Indication: Product used for unknown indication
     Route: 065
  176. FLUMETHASONE PIVALATE [Suspect]
     Active Substance: FLUMETHASONE PIVALATE
     Indication: Rheumatoid arthritis
     Route: 065
  177. FOLIC ACID [Suspect]
     Active Substance: FOLIC ACID
     Route: 065
  178. FOLIC ACID [Suspect]
     Active Substance: FOLIC ACID
     Dosage: 1 MG, QW
     Route: 065
  179. FOLIC ACID [Suspect]
     Active Substance: FOLIC ACID
     Route: 048
  180. FOLIC ACID [Suspect]
     Active Substance: FOLIC ACID
     Route: 048
  181. FOLIC ACID [Suspect]
     Active Substance: FOLIC ACID
     Route: 058
  182. FOLIC ACID [Suspect]
     Active Substance: FOLIC ACID
     Route: 065
  183. FOLIC ACID [Suspect]
     Active Substance: FOLIC ACID
     Route: 065
  184. FOLIC ACID [Suspect]
     Active Substance: FOLIC ACID
     Route: 048
  185. FOLIC ACID [Suspect]
     Active Substance: FOLIC ACID
     Indication: Rheumatoid arthritis
     Route: 065
  186. FOLIC ACID [Suspect]
     Active Substance: FOLIC ACID
     Route: 065
  187. FOLIC ACID [Suspect]
     Active Substance: FOLIC ACID
     Route: 048
  188. FOLIC ACID [Suspect]
     Active Substance: FOLIC ACID
     Route: 065
  189. FOLIC ACID [Suspect]
     Active Substance: FOLIC ACID
     Route: 065
  190. FOLIC ACID [Suspect]
     Active Substance: FOLIC ACID
     Route: 048
  191. FOLIC ACID [Suspect]
     Active Substance: FOLIC ACID
     Route: 065
  192. FOLIC ACID [Suspect]
     Active Substance: FOLIC ACID
     Route: 065
  193. FOLIC ACID [Suspect]
     Active Substance: FOLIC ACID
     Route: 065
  194. FOLIC ACID [Suspect]
     Active Substance: FOLIC ACID
     Route: 065
  195. FOLIC ACID [Suspect]
     Active Substance: FOLIC ACID
     Indication: Product used for unknown indication
     Route: 065
  196. FOLIC ACID [Suspect]
     Active Substance: FOLIC ACID
     Route: 065
  197. FOLIC ACID [Suspect]
     Active Substance: FOLIC ACID
     Route: 065
  198. FOLIC ACID [Suspect]
     Active Substance: FOLIC ACID
     Route: 065
  199. FOLIC ACID [Suspect]
     Active Substance: FOLIC ACID
     Route: 065
  200. FOSAMAX [Suspect]
     Active Substance: ALENDRONATE SODIUM
     Route: 048
  201. FOSAMAX [Suspect]
     Active Substance: ALENDRONATE SODIUM
     Route: 005
  202. FOSAMAX [Suspect]
     Active Substance: ALENDRONATE SODIUM
     Route: 005
  203. FOSAMAX [Suspect]
     Active Substance: ALENDRONATE SODIUM
     Route: 016
  204. FOSAMAX [Suspect]
     Active Substance: ALENDRONATE SODIUM
     Indication: Product used for unknown indication
     Route: 048
  205. FOSAMAX [Suspect]
     Active Substance: ALENDRONATE SODIUM
     Indication: Rheumatoid arthritis
     Route: 048
  206. FOSAMAX [Suspect]
     Active Substance: ALENDRONATE SODIUM
     Route: 048
  207. FOSAMAX [Suspect]
     Active Substance: ALENDRONATE SODIUM
     Route: 048
  208. FOSAMAX [Suspect]
     Active Substance: ALENDRONATE SODIUM
     Route: 048
  209. FOSAMAX [Suspect]
     Active Substance: ALENDRONATE SODIUM
     Route: 058
  210. FOSAMAX [Suspect]
     Active Substance: ALENDRONATE SODIUM
     Route: 065
  211. FOSAMAX [Suspect]
     Active Substance: ALENDRONATE SODIUM
     Route: 065
  212. FOSAMAX [Suspect]
     Active Substance: ALENDRONATE SODIUM
     Route: 065
  213. GOLIMUMAB [Suspect]
     Active Substance: GOLIMUMAB
     Indication: Product used for unknown indication
     Route: 058
  214. GOLIMUMAB [Suspect]
     Active Substance: GOLIMUMAB
     Indication: Rheumatoid arthritis
     Route: 065
  215. HYDROCORTISONE [Suspect]
     Active Substance: HYDROCORTISONE
     Indication: Product used for unknown indication
     Route: 061
  216. HYDROCORTISONE [Suspect]
     Active Substance: HYDROCORTISONE
     Route: 003
  217. HYDROCORTISONE [Suspect]
     Active Substance: HYDROCORTISONE
     Route: 048
  218. HYDROCORTISONE [Suspect]
     Active Substance: HYDROCORTISONE
     Route: 058
  219. HYDROCORTISONE [Suspect]
     Active Substance: HYDROCORTISONE
     Route: 058
  220. HYDROCORTISONE [Suspect]
     Active Substance: HYDROCORTISONE
     Indication: Rheumatoid arthritis
     Route: 065
  221. HYDROCORTISONE [Suspect]
     Active Substance: HYDROCORTISONE
     Route: 065
  222. HYDROCORTISONE [Suspect]
     Active Substance: HYDROCORTISONE
     Route: 065
  223. HYDROCORTISONE [Suspect]
     Active Substance: HYDROCORTISONE
     Route: 065
  224. HYDROCORTISONE [Suspect]
     Active Substance: HYDROCORTISONE
     Route: 065
  225. HUMIRA [Suspect]
     Active Substance: ADALIMUMAB
     Indication: Psoriatic arthropathy
     Route: 058
  226. HUMIRA [Suspect]
     Active Substance: ADALIMUMAB
     Indication: Rheumatoid arthritis
     Route: 058
  227. HUMIRA [Suspect]
     Active Substance: ADALIMUMAB
     Indication: Product used for unknown indication
     Route: 058
  228. HUMIRA [Suspect]
     Active Substance: ADALIMUMAB
     Route: 058
  229. HUMIRA [Suspect]
     Active Substance: ADALIMUMAB
     Route: 065
  230. HYDROXYCHLOROQUINE [Suspect]
     Active Substance: HYDROXYCHLOROQUINE
     Route: 048
  231. HYDROXYCHLOROQUINE [Suspect]
     Active Substance: HYDROXYCHLOROQUINE
     Dosage: 40 MG, QD
     Route: 065
  232. HYDROXYCHLOROQUINE [Suspect]
     Active Substance: HYDROXYCHLOROQUINE
     Indication: Product used for unknown indication
     Route: 065
  233. HYDROXYCHLOROQUINE [Suspect]
     Active Substance: HYDROXYCHLOROQUINE
     Indication: Rheumatoid arthritis
     Route: 065
  234. HYDROXYCHLOROQUINE [Suspect]
     Active Substance: HYDROXYCHLOROQUINE
     Dosage: 400 MG, QD
     Route: 048
  235. HYDROXYCHLOROQUINE [Suspect]
     Active Substance: HYDROXYCHLOROQUINE
     Dosage: 400 MG, QD
     Route: 048
  236. HYDROXYCHLOROQUINE [Suspect]
     Active Substance: HYDROXYCHLOROQUINE
     Dosage: 400 MG, QD
     Route: 048
  237. HYDROXYCHLOROQUINE [Suspect]
     Active Substance: HYDROXYCHLOROQUINE
     Dosage: 400 MG, QD
     Route: 048
  238. HYDROXYCHLOROQUINE [Suspect]
     Active Substance: HYDROXYCHLOROQUINE
     Dosage: 400 MG, QD
     Route: 065
  239. HYDROXYCHLOROQUINE [Suspect]
     Active Substance: HYDROXYCHLOROQUINE
     Dosage: 400 MG, QD
     Route: 065
  240. HYDROXYCHLOROQUINE [Suspect]
     Active Substance: HYDROXYCHLOROQUINE
     Dosage: 400 MG, QD
     Route: 065
  241. HYDROXYCHLOROQUINE [Suspect]
     Active Substance: HYDROXYCHLOROQUINE
     Route: 065
  242. HYDROXYCHLOROQUINE [Suspect]
     Active Substance: HYDROXYCHLOROQUINE
     Route: 065
  243. HYDROXYCHLOROQUINE [Suspect]
     Active Substance: HYDROXYCHLOROQUINE
     Route: 065
  244. HYDROXYCHLOROQUINE [Suspect]
     Active Substance: HYDROXYCHLOROQUINE
     Route: 065
  245. HYDROXYCHLOROQUINE [Suspect]
     Active Substance: HYDROXYCHLOROQUINE
     Route: 048
  246. HYDROXYCHLOROQUINE [Suspect]
     Active Substance: HYDROXYCHLOROQUINE
     Route: 065
  247. HYDROXYCHLOROQUINE [Suspect]
     Active Substance: HYDROXYCHLOROQUINE
     Route: 048
  248. HYDROXYCHLOROQUINE [Suspect]
     Active Substance: HYDROXYCHLOROQUINE
     Route: 048
  249. HYDROXYCHLOROQUINE [Suspect]
     Active Substance: HYDROXYCHLOROQUINE
     Route: 065
  250. HYDROXYCHLOROQUINE [Suspect]
     Active Substance: HYDROXYCHLOROQUINE
     Route: 065
  251. HYDROXYCHLOROQUINE [Suspect]
     Active Substance: HYDROXYCHLOROQUINE
     Route: 065
  252. INFLIXIMAB [Suspect]
     Active Substance: INFLIXIMAB
     Route: 065
  253. INFLIXIMAB [Suspect]
     Active Substance: INFLIXIMAB
     Route: 042
  254. INFLIXIMAB [Suspect]
     Active Substance: INFLIXIMAB
     Indication: Rheumatoid arthritis
     Route: 042
  255. INFLIXIMAB [Suspect]
     Active Substance: INFLIXIMAB
     Route: 042
  256. INFLIXIMAB [Suspect]
     Active Substance: INFLIXIMAB
     Route: 065
  257. ISOPROPYL ALCOHOL [Suspect]
     Active Substance: ISOPROPYL ALCOHOL
     Indication: Product used for unknown indication
     Route: 061
  258. LEFLUNOMIDE [Suspect]
     Active Substance: LEFLUNOMIDE
     Indication: Rheumatoid arthritis
     Route: 048
  259. LEFLUNOMIDE [Suspect]
     Active Substance: LEFLUNOMIDE
     Route: 048
  260. LEFLUNOMIDE [Suspect]
     Active Substance: LEFLUNOMIDE
     Route: 048
  261. METHOTREXATE [Suspect]
     Active Substance: METHOTREXATE
     Route: 048
  262. METHOTREXATE [Suspect]
     Active Substance: METHOTREXATE
     Dosage: 15 MG, QD
     Route: 048
  263. METHOTREXATE [Suspect]
     Active Substance: METHOTREXATE
     Route: 048
  264. METHOTREXATE [Suspect]
     Active Substance: METHOTREXATE
     Dosage: 2 MG, QD
     Route: 048
  265. METHOTREXATE [Suspect]
     Active Substance: METHOTREXATE
     Dosage: 2 MG, QD
     Route: 048
  266. METHOTREXATE [Suspect]
     Active Substance: METHOTREXATE
     Route: 065
  267. METHOTREXATE [Suspect]
     Active Substance: METHOTREXATE
     Dosage: 20 MG, QW
     Route: 048
  268. METHOTREXATE [Suspect]
     Active Substance: METHOTREXATE
     Dosage: 20 MG, QW
     Route: 048
  269. METHOTREXATE [Suspect]
     Active Substance: METHOTREXATE
     Dosage: 20 MG, QW
     Route: 048
  270. METHOTREXATE [Suspect]
     Active Substance: METHOTREXATE
     Dosage: 20 MG, QD
     Route: 048
  271. METHOTREXATE [Suspect]
     Active Substance: METHOTREXATE
     Dosage: 20 MG, QD
     Route: 048
  272. METHOTREXATE [Suspect]
     Active Substance: METHOTREXATE
     Indication: Rheumatoid arthritis
     Route: 048
  273. METHOTREXATE [Suspect]
     Active Substance: METHOTREXATE
     Dosage: 25 MG, QW
     Route: 048
  274. METHOTREXATE [Suspect]
     Active Substance: METHOTREXATE
     Dosage: 25 MG, QW
     Route: 048
  275. METHOTREXATE [Suspect]
     Active Substance: METHOTREXATE
     Dosage: 25 MG, QD
     Route: 048
  276. METHOTREXATE [Suspect]
     Active Substance: METHOTREXATE
     Route: 013
  277. METHOTREXATE [Suspect]
     Active Substance: METHOTREXATE
     Route: 048
  278. METHOTREXATE [Suspect]
     Active Substance: METHOTREXATE
     Route: 048
  279. METHOTREXATE [Suspect]
     Active Substance: METHOTREXATE
     Route: 058
  280. METHOTREXATE [Suspect]
     Active Substance: METHOTREXATE
     Route: 065
  281. MYCOPHENOLATE MOFETIL [Suspect]
     Active Substance: MYCOPHENOLATE MOFETIL
     Indication: Product used for unknown indication
     Route: 065
  282. NAPROXEN SODIUM [Suspect]
     Active Substance: NAPROXEN SODIUM
     Indication: Rheumatoid arthritis
     Route: 065
  283. NAPROXEN SODIUM [Suspect]
     Active Substance: NAPROXEN SODIUM
     Indication: Product used for unknown indication
     Route: 065
  284. ALFACALCIDOL [Suspect]
     Active Substance: ALFACALCIDOL
     Indication: Product used for unknown indication
     Route: 065
  285. ORENCIA [Suspect]
     Active Substance: ABATACEPT
     Dosage: 1 DF, QD
     Route: 042
  286. ORENCIA [Suspect]
     Active Substance: ABATACEPT
     Indication: Product used for unknown indication
     Dosage: 120 MG, QW
     Route: 058
  287. ORENCIA [Suspect]
     Active Substance: ABATACEPT
     Dosage: 125 MG, QW
     Route: 042
  288. ORENCIA [Suspect]
     Active Substance: ABATACEPT
     Route: 058
  289. ORENCIA [Suspect]
     Active Substance: ABATACEPT
     Route: 058
  290. ORENCIA [Suspect]
     Active Substance: ABATACEPT
     Dosage: 17.875 MG, QD
     Route: 042
  291. ORENCIA [Suspect]
     Active Substance: ABATACEPT
     Dosage: 17.875 MG, QD
     Route: 058
  292. ORENCIA [Suspect]
     Active Substance: ABATACEPT
     Dosage: 18 MG, QD
     Route: 058
  293. ORENCIA [Suspect]
     Active Substance: ABATACEPT
     Route: 048
  294. ORENCIA [Suspect]
     Active Substance: ABATACEPT
     Route: 065
  295. ORENCIA [Suspect]
     Active Substance: ABATACEPT
     Route: 042
  296. ORENCIA [Suspect]
     Active Substance: ABATACEPT
     Route: 065
  297. ORENCIA [Suspect]
     Active Substance: ABATACEPT
     Dosage: UNK, QW
     Route: 042
  298. ORENCIA [Suspect]
     Active Substance: ABATACEPT
     Dosage: UNK, QD
     Route: 042
  299. ORENCIA [Suspect]
     Active Substance: ABATACEPT
     Route: 041
  300. ORENCIA [Suspect]
     Active Substance: ABATACEPT
     Route: 042
  301. ORENCIA [Suspect]
     Active Substance: ABATACEPT
     Indication: Rheumatoid arthritis
     Route: 058
  302. ORENCIA [Suspect]
     Active Substance: ABATACEPT
     Route: 065
  303. OXYCODONE AND ACETAMINOPHEN [Suspect]
     Active Substance: ACETAMINOPHEN\OXYCODONE HYDROCHLORIDE
     Indication: Product used for unknown indication
     Route: 065
  304. PREGABALIN [Suspect]
     Active Substance: PREGABALIN
     Indication: Product used for unknown indication
     Route: 065
  305. PREGABALIN [Suspect]
     Active Substance: PREGABALIN
     Indication: Product used for unknown indication
     Route: 065
  306. PERIOGARD [Suspect]
     Active Substance: CHLORHEXIDINE GLUCONATE
     Indication: Product used for unknown indication
     Route: 065
  307. PERIOGARD [Suspect]
     Active Substance: CHLORHEXIDINE GLUCONATE
     Route: 002
  308. PERIOGARD [Suspect]
     Active Substance: CHLORHEXIDINE GLUCONATE
     Route: 048
  309. PERIOGARD [Suspect]
     Active Substance: CHLORHEXIDINE GLUCONATE
     Route: 065
  310. PHTHALYLSULFATHIAZOLE [Suspect]
     Active Substance: PHTHALYLSULFATHIAZOLE
     Dosage: 1000 MG, Q2W
     Route: 048
  311. PHTHALYLSULFATHIAZOLE [Suspect]
     Active Substance: PHTHALYLSULFATHIAZOLE
     Dosage: 1000 MG, Q2W
     Route: 048
  312. PHTHALYLSULFATHIAZOLE [Suspect]
     Active Substance: PHTHALYLSULFATHIAZOLE
     Route: 048
  313. PHTHALYLSULFATHIAZOLE [Suspect]
     Active Substance: PHTHALYLSULFATHIAZOLE
     Route: 065
  314. PHTHALYLSULFATHIAZOLE [Suspect]
     Active Substance: PHTHALYLSULFATHIAZOLE
     Route: 048
  315. PHTHALYLSULFATHIAZOLE [Suspect]
     Active Substance: PHTHALYLSULFATHIAZOLE
     Route: 048
  316. PHTHALYLSULFATHIAZOLE [Suspect]
     Active Substance: PHTHALYLSULFATHIAZOLE
     Route: 065
  317. PHTHALYLSULFATHIAZOLE [Suspect]
     Active Substance: PHTHALYLSULFATHIAZOLE
     Route: 065
  318. PHTHALYLSULFATHIAZOLE [Suspect]
     Active Substance: PHTHALYLSULFATHIAZOLE
     Route: 048
  319. PHTHALYLSULFATHIAZOLE [Suspect]
     Active Substance: PHTHALYLSULFATHIAZOLE
     Route: 016
  320. PHTHALYLSULFATHIAZOLE [Suspect]
     Active Substance: PHTHALYLSULFATHIAZOLE
     Route: 042
  321. PHTHALYLSULFATHIAZOLE [Suspect]
     Active Substance: PHTHALYLSULFATHIAZOLE
     Route: 048
  322. PHTHALYLSULFATHIAZOLE [Suspect]
     Active Substance: PHTHALYLSULFATHIAZOLE
     Indication: Product used for unknown indication
     Route: 058
  323. PHTHALYLSULFATHIAZOLE [Suspect]
     Active Substance: PHTHALYLSULFATHIAZOLE
     Indication: Rheumatoid arthritis
     Route: 065
  324. PREDNISOLONE [Suspect]
     Active Substance: PREDNISOLONE
     Indication: Condition aggravated
     Route: 065
  325. PREDNISOLONE [Suspect]
     Active Substance: PREDNISOLONE
     Indication: Rheumatoid arthritis
     Dosage: 7.5 MG, QD
     Route: 048
  326. PREDNISOLONE [Suspect]
     Active Substance: PREDNISOLONE
     Indication: Psoriatic arthropathy
     Route: 048
  327. PREDNISOLONE [Suspect]
     Active Substance: PREDNISOLONE
     Route: 065
  328. PREDNISONE [Suspect]
     Active Substance: PREDNISONE
     Route: 065
  329. PREDNISONE [Suspect]
     Active Substance: PREDNISONE
     Route: 048
  330. PREDNISONE [Suspect]
     Active Substance: PREDNISONE
     Route: 048
  331. PREDNISONE [Suspect]
     Active Substance: PREDNISONE
     Route: 048
  332. PREDNISONE [Suspect]
     Active Substance: PREDNISONE
     Route: 048
  333. PREDNISONE [Suspect]
     Active Substance: PREDNISONE
     Indication: Rheumatoid arthritis
     Route: 048
  334. PREDNISONE [Suspect]
     Active Substance: PREDNISONE
     Route: 048
  335. PREDNISONE [Suspect]
     Active Substance: PREDNISONE
     Indication: Condition aggravated
     Dosage: 7.5 MG, QD
     Route: 048
  336. PREDNISONE [Suspect]
     Active Substance: PREDNISONE
     Indication: Psoriatic arthropathy
     Route: 048
  337. PREDNISONE [Suspect]
     Active Substance: PREDNISONE
     Route: 048
  338. PREDNISONE [Suspect]
     Active Substance: PREDNISONE
     Route: 065
  339. PSEUDOEPHEDRINE HYDROCHLORIDE [Suspect]
     Active Substance: PSEUDOEPHEDRINE HYDROCHLORIDE
     Indication: Product used for unknown indication
     Route: 065
  340. PSEUDOEPHEDRINE HYDROCHLORIDE [Suspect]
     Active Substance: PSEUDOEPHEDRINE HYDROCHLORIDE
     Route: 065
  341. PSEUDOEPHEDRINE HYDROCHLORIDE [Suspect]
     Active Substance: PSEUDOEPHEDRINE HYDROCHLORIDE
     Route: 065
  342. PSEUDOEPHEDRINE HYDROCHLORIDE [Suspect]
     Active Substance: PSEUDOEPHEDRINE HYDROCHLORIDE
     Route: 065
  343. RITUXIMAB [Suspect]
     Active Substance: RITUXIMAB
     Route: 016
  344. RITUXIMAB [Suspect]
     Active Substance: RITUXIMAB
     Route: 065
  345. RITUXIMAB [Suspect]
     Active Substance: RITUXIMAB
     Route: 016
  346. RITUXIMAB [Suspect]
     Active Substance: RITUXIMAB
     Route: 042
  347. RITUXIMAB [Suspect]
     Active Substance: RITUXIMAB
     Indication: Rheumatoid arthritis
     Route: 058
  348. RITUXIMAB [Suspect]
     Active Substance: RITUXIMAB
     Route: 058
  349. CETIRIZINE HYDROCHLORIDE [Suspect]
     Active Substance: CETIRIZINE HYDROCHLORIDE
     Indication: Rheumatoid arthritis
     Dosage: 10 MG, QD
     Route: 065
  350. CETIRIZINE HYDROCHLORIDE [Suspect]
     Active Substance: CETIRIZINE HYDROCHLORIDE
     Indication: Product used for unknown indication
     Route: 065
  351. CETIRIZINE HYDROCHLORIDE [Suspect]
     Active Substance: CETIRIZINE HYDROCHLORIDE
     Route: 016
  352. CETIRIZINE HYDROCHLORIDE\PSEUDOEPHEDRINE HYDROCHLORIDE [Suspect]
     Active Substance: CETIRIZINE HYDROCHLORIDE\PSEUDOEPHEDRINE HYDROCHLORIDE
     Route: 048
  353. CETIRIZINE HYDROCHLORIDE\PSEUDOEPHEDRINE HYDROCHLORIDE [Suspect]
     Active Substance: CETIRIZINE HYDROCHLORIDE\PSEUDOEPHEDRINE HYDROCHLORIDE
     Route: 065
  354. CETIRIZINE HYDROCHLORIDE\PSEUDOEPHEDRINE HYDROCHLORIDE [Suspect]
     Active Substance: CETIRIZINE HYDROCHLORIDE\PSEUDOEPHEDRINE HYDROCHLORIDE
     Indication: Product used for unknown indication
     Route: 065
  355. CETIRIZINE HYDROCHLORIDE\PSEUDOEPHEDRINE HYDROCHLORIDE [Suspect]
     Active Substance: CETIRIZINE HYDROCHLORIDE\PSEUDOEPHEDRINE HYDROCHLORIDE
     Indication: Rheumatoid arthritis
     Route: 065
  356. CETIRIZINE HYDROCHLORIDE\PSEUDOEPHEDRINE HYDROCHLORIDE [Suspect]
     Active Substance: CETIRIZINE HYDROCHLORIDE\PSEUDOEPHEDRINE HYDROCHLORIDE
     Route: 065
  357. REMICADE [Suspect]
     Active Substance: INFLIXIMAB
     Indication: Rheumatoid arthritis
     Route: 042
  358. REMICADE [Suspect]
     Active Substance: INFLIXIMAB
     Indication: Product used for unknown indication
     Route: 042
  359. REMICADE [Suspect]
     Active Substance: INFLIXIMAB
     Route: 065
  360. SIMPONI [Suspect]
     Active Substance: GOLIMUMAB
     Route: 058
  361. SIMPONI [Suspect]
     Active Substance: GOLIMUMAB
     Route: 042
  362. SIMPONI [Suspect]
     Active Substance: GOLIMUMAB
     Route: 052
  363. SIMPONI [Suspect]
     Active Substance: GOLIMUMAB
     Indication: Rheumatoid arthritis
     Route: 058
  364. SIMPONI [Suspect]
     Active Substance: GOLIMUMAB
     Indication: Product used for unknown indication
     Route: 065
  365. STELARA [Suspect]
     Active Substance: USTEKINUMAB
     Indication: Product used for unknown indication
     Route: 042
  366. STELARA [Suspect]
     Active Substance: USTEKINUMAB
     Route: 058
  367. STELARA [Suspect]
     Active Substance: USTEKINUMAB
     Route: 042
  368. STELARA [Suspect]
     Active Substance: USTEKINUMAB
     Indication: Rheumatoid arthritis
     Route: 058
  369. SULFAMETHOXAZOLE [Suspect]
     Active Substance: SULFAMETHOXAZOLE
     Indication: Rheumatoid arthritis
     Route: 065
  370. SULFAMETHOXAZOLE AND TRIMETHOPRIM [Suspect]
     Active Substance: SULFAMETHOXAZOLE\TRIMETHOPRIM
     Indication: Product used for unknown indication
     Route: 065
  371. SULFAMETHOXAZOLE AND TRIMETHOPRIM [Suspect]
     Active Substance: SULFAMETHOXAZOLE\TRIMETHOPRIM
     Route: 065
  372. SULFAMETHOXAZOLE AND TRIMETHOPRIM [Suspect]
     Active Substance: SULFAMETHOXAZOLE\TRIMETHOPRIM
     Route: 065
  373. SULFAMETHOXAZOLE AND TRIMETHOPRIM [Suspect]
     Active Substance: SULFAMETHOXAZOLE\TRIMETHOPRIM
     Route: 067
  374. SULFASALAZINE [Suspect]
     Active Substance: SULFASALAZINE
     Dosage: 1 G, QD
     Route: 048
  375. SULFASALAZINE [Suspect]
     Active Substance: SULFASALAZINE
     Dosage: 1 G, QD
     Route: 058
  376. SULFASALAZINE [Suspect]
     Active Substance: SULFASALAZINE
     Route: 058
  377. SULFASALAZINE [Suspect]
     Active Substance: SULFASALAZINE
     Route: 058
  378. SULFASALAZINE [Suspect]
     Active Substance: SULFASALAZINE
     Route: 058
  379. SULFASALAZINE [Suspect]
     Active Substance: SULFASALAZINE
     Dosage: 1 MG, QD
     Route: 065
  380. SULFASALAZINE [Suspect]
     Active Substance: SULFASALAZINE
     Dosage: 1 DF, QD
     Route: 048
  381. SULFASALAZINE [Suspect]
     Active Substance: SULFASALAZINE
     Route: 048
  382. SULFASALAZINE [Suspect]
     Active Substance: SULFASALAZINE
     Route: 048
  383. SULFASALAZINE [Suspect]
     Active Substance: SULFASALAZINE
     Route: 048
  384. SULFASALAZINE [Suspect]
     Active Substance: SULFASALAZINE
     Dosage: 2 G, QD
     Route: 048
  385. SULFASALAZINE [Suspect]
     Active Substance: SULFASALAZINE
     Dosage: 2 G, QD
     Route: 048
  386. SULFASALAZINE [Suspect]
     Active Substance: SULFASALAZINE
     Dosage: 2 G, QD
     Route: 065
  387. SULFASALAZINE [Suspect]
     Active Substance: SULFASALAZINE
     Route: 048
  388. SULFASALAZINE [Suspect]
     Active Substance: SULFASALAZINE
     Dosage: 2000 MG, QD
     Route: 048
  389. SULFASALAZINE [Suspect]
     Active Substance: SULFASALAZINE
     Dosage: 2000 MG, QD
     Route: 048
  390. SULFASALAZINE [Suspect]
     Active Substance: SULFASALAZINE
     Route: 048
  391. SULFASALAZINE [Suspect]
     Active Substance: SULFASALAZINE
     Route: 048
  392. SULFASALAZINE [Suspect]
     Active Substance: SULFASALAZINE
     Route: 048
  393. SULFASALAZINE [Suspect]
     Active Substance: SULFASALAZINE
     Route: 048
  394. SULFASALAZINE [Suspect]
     Active Substance: SULFASALAZINE
     Route: 065
  395. SULFASALAZINE [Suspect]
     Active Substance: SULFASALAZINE
     Dosage: 4000 MG, QD
     Route: 048
  396. SULFASALAZINE [Suspect]
     Active Substance: SULFASALAZINE
     Indication: Product used for unknown indication
     Dosage: 500 MG, QD
     Route: 048
  397. SULFASALAZINE [Suspect]
     Active Substance: SULFASALAZINE
     Dosage: 500 MG, QD
     Route: 065
  398. SULFASALAZINE [Suspect]
     Active Substance: SULFASALAZINE
     Route: 048
  399. SULFASALAZINE [Suspect]
     Active Substance: SULFASALAZINE
     Route: 048
  400. SULFASALAZINE [Suspect]
     Active Substance: SULFASALAZINE
     Route: 058
  401. SULFASALAZINE [Suspect]
     Active Substance: SULFASALAZINE
     Route: 048
  402. SULFASALAZINE [Suspect]
     Active Substance: SULFASALAZINE
     Route: 048
  403. SULFASALAZINE [Suspect]
     Active Substance: SULFASALAZINE
     Route: 065
  404. SULFASALAZINE [Suspect]
     Active Substance: SULFASALAZINE
     Route: 065
  405. SULFASALAZINE [Suspect]
     Active Substance: SULFASALAZINE
     Route: 065
  406. TOFACITINIB CITRATE [Suspect]
     Active Substance: TOFACITINIB CITRATE
     Indication: Psoriatic arthropathy
     Dosage: 5 MG, QW
     Route: 048
  407. TOFACITINIB CITRATE [Suspect]
     Active Substance: TOFACITINIB CITRATE
     Indication: Rheumatoid arthritis
     Route: 048
  408. TOFACITINIB CITRATE [Suspect]
     Active Substance: TOFACITINIB CITRATE
     Indication: Product used for unknown indication
     Route: 065
  409. TOFACITINIB CITRATE [Suspect]
     Active Substance: TOFACITINIB CITRATE
     Route: 058
  410. TOFACITINIB CITRATE [Suspect]
     Active Substance: TOFACITINIB CITRATE
     Route: 065
  411. TRIAMCINOLONE ACETONIDE [Suspect]
     Active Substance: TRIAMCINOLONE ACETONIDE
     Indication: Rheumatoid arthritis
     Route: 014
  412. TUMS [Suspect]
     Active Substance: CALCIUM CARBONATE
     Indication: Product used for unknown indication
     Route: 065
  413. PREDNISONE [Suspect]
     Active Substance: PREDNISONE
     Indication: Rheumatoid arthritis
     Route: 048
  414. XELJANZ [Suspect]
     Active Substance: TOFACITINIB CITRATE
     Indication: Rheumatoid arthritis
     Route: 048
  415. XELJANZ [Suspect]
     Active Substance: TOFACITINIB CITRATE
     Indication: Product used for unknown indication
     Route: 065
  416. XELJANZ [Suspect]
     Active Substance: TOFACITINIB CITRATE
     Route: 065
  417. XELJANZ [Suspect]
     Active Substance: TOFACITINIB CITRATE
     Route: 065
  418. XELJANZ [Suspect]
     Active Substance: TOFACITINIB CITRATE
     Route: 065
  419. XELJANZ [Suspect]
     Active Substance: TOFACITINIB CITRATE
     Route: 065
  420. XELJANZ [Suspect]
     Active Substance: TOFACITINIB CITRATE
     Route: 048
  421. XELJANZ [Suspect]
     Active Substance: TOFACITINIB CITRATE
     Route: 065
  422. XELJANZ [Suspect]
     Active Substance: TOFACITINIB CITRATE
     Route: 065
  423. XELJANZ [Suspect]
     Active Substance: TOFACITINIB CITRATE
     Route: 065

REACTIONS (50)
  - Abdominal pain [Fatal]
  - Alopecia [Fatal]
  - Anti-cyclic citrullinated peptide antibody [Fatal]
  - Anxiety [Fatal]
  - Asthenia [Fatal]
  - Asthma [Fatal]
  - Autoimmune disorder [Fatal]
  - Blister [Fatal]
  - Blood cholesterol increased [Fatal]
  - Bone erosion [Fatal]
  - Bursitis [Fatal]
  - C-reactive protein abnormal [Fatal]
  - C-reactive protein increased [Fatal]
  - Chest pain [Fatal]
  - Condition aggravated [Fatal]
  - Confusional state [Fatal]
  - Contusion [Fatal]
  - Decreased appetite [Fatal]
  - Deep vein thrombosis postoperative [Fatal]
  - Drug hypersensitivity [Fatal]
  - Drug intolerance [Fatal]
  - Facet joint syndrome [Fatal]
  - Fatigue [Fatal]
  - Fibromyalgia [Fatal]
  - Folliculitis [Fatal]
  - Gait inability [Fatal]
  - Gastrointestinal disorder [Fatal]
  - Glossodynia [Fatal]
  - Hand deformity [Fatal]
  - Headache [Fatal]
  - Helicobacter infection [Fatal]
  - Hypersensitivity [Fatal]
  - Hypoaesthesia [Fatal]
  - Impaired healing [Fatal]
  - Injury [Fatal]
  - Joint swelling [Fatal]
  - Liver injury [Fatal]
  - Lower limb fracture [Fatal]
  - Lower respiratory tract infection [Fatal]
  - Lung disorder [Fatal]
  - Muscle injury [Fatal]
  - Muscle spasms [Fatal]
  - Musculoskeletal pain [Fatal]
  - Nasopharyngitis [Fatal]
  - Obesity [Fatal]
  - Oedema peripheral [Fatal]
  - Pain in extremity [Fatal]
  - X-ray abnormal [Fatal]
  - Underdose [Fatal]
  - Intentional product use issue [Fatal]
